FAERS Safety Report 25361427 (Version 1)
Quarter: 2025Q2

REPORT INFORMATION
  Report Type: Spontaneous
  Country: US (occurrence: US)
  Receive Date: 20250527
  Receipt Date: 20250527
  Transmission Date: 20250717
  Serious: No
  Sender: Vantive US Healthcare
  Company Number: US-VANTIVE-2025VAN001849

PATIENT
  Age: 39 Year
  Sex: Female

DRUGS (1)
  1. DIANEAL LOW CALCIUM WITH DEXTROSE [Suspect]
     Active Substance: CALCIUM CHLORIDE\DEXTROSE\MAGNESIUM CHLORIDE\SODIUM CHLORIDE\SODIUM LACTATE
     Route: 033
     Dates: start: 202504, end: 202505

REACTIONS (2)
  - Nausea [Recovered/Resolved]
  - Vomiting [Recovered/Resolved]

NARRATIVE: CASE EVENT DATE: 20250404
